FAERS Safety Report 6150470-6 (Version None)
Quarter: 2009Q2

REPORT INFORMATION
  Report Type: 
  Country: None (occurrence: None)
  Receive Date: 20090409
  Receipt Date: 20090401
  Transmission Date: 20091009
  Serious: Yes (Hospitalization)
  Sender: FDA-Public Use
  Company Number: SE-JNJFOC-20090400435

PATIENT
  Sex: Female

DRUGS (6)
  1. TOPIMAX [Suspect]
     Indication: EPILEPSY
     Route: 048
  2. CITALOPRAM HYDROBROMIDE [Concomitant]
     Route: 065
  3. FENANTOIN [Concomitant]
     Route: 048
  4. XANOR [Concomitant]
     Route: 065
  5. HERMOLEPSIN [Concomitant]
     Route: 048
  6. TEGRETOL [Concomitant]
     Route: 054

REACTIONS (3)
  - ANOREXIA [None]
  - CONVULSION [None]
  - SUFFOCATION FEELING [None]
